FAERS Safety Report 5132378-8 (Version None)
Quarter: 2006Q4

REPORT INFORMATION
  Report Type: 
  Country: None (occurrence: None)
  Receive Date: 20061020
  Receipt Date: 20061020
  Transmission Date: 20070319
  Serious: Yes (Hospitalization)
  Sender: FDA-Public Use
  Company Number: None

PATIENT
  Age: 16 Year
  Sex: Female
  Weight: 92.9874 kg

DRUGS (2)
  1. YASMIN [Suspect]
     Indication: CONTRACEPTION
     Dosage: 1 DAILY PO
     Route: 048
     Dates: start: 20050901, end: 20060901
  2. YASMIN [Suspect]
     Indication: MENSTRUATION IRREGULAR
     Dosage: 1 DAILY PO
     Route: 048
     Dates: start: 20050901, end: 20060901

REACTIONS (1)
  - PULMONARY EMBOLISM [None]
